FAERS Safety Report 10948034 (Version 1)
Quarter: 2015Q1

REPORT INFORMATION
  Report Type: Spontaneous
  Country: GB (occurrence: GB)
  Receive Date: 20150324
  Receipt Date: 20150324
  Transmission Date: 20150721
  Serious: Yes (Hospitalization)
  Sender: FDA-Public Use
  Company Number: GB-CIPLA LTD.-2015GB02059

PATIENT

DRUGS (20)
  1. CISPLATIN. [Suspect]
     Active Substance: CISPLATIN
     Dosage: 125MG
     Route: 042
     Dates: start: 20130522
  2. ATORVASTATIN [Concomitant]
     Active Substance: ATORVASTATIN
     Dosage: UNK
  3. TRANDOLAPRIL. [Concomitant]
     Active Substance: TRANDOLAPRIL
     Dosage: UNK
     Route: 048
     Dates: start: 2001
  4. EPIRUBICIN [Suspect]
     Active Substance: EPIRUBICIN
     Indication: GASTROOESOPHAGEAL CANCER
  5. CAPECITABINE. [Suspect]
     Active Substance: CAPECITABINE
     Indication: ADENOCARCINOMA GASTRIC
     Dosage: 2500MG
     Route: 048
     Dates: start: 20130522
  6. METFORMIN [Suspect]
     Active Substance: METFORMIN HYDROCHLORIDE
     Dosage: 1000MG
     Route: 048
  7. GLIPIZIDE. [Suspect]
     Active Substance: GLIPIZIDE
     Dosage: UNK
     Dates: start: 2009, end: 20130527
  8. METFORMIN [Suspect]
     Active Substance: METFORMIN HYDROCHLORIDE
     Dosage: 2000MG
     Route: 048
     Dates: start: 2009
  9. BEVACIZUMAB [Suspect]
     Active Substance: BEVACIZUMAB
     Indication: GASTROOESOPHAGEAL CANCER
  10. ATORVASTATIN [Concomitant]
     Active Substance: ATORVASTATIN
     Dosage: UNK
     Route: 048
     Dates: start: 2001
  11. CLOPIDOGREL [Concomitant]
     Active Substance: CLOPIDOGREL BISULFATE
     Dosage: UNK
     Route: 048
     Dates: start: 201303
  12. EPIRUBICIN [Suspect]
     Active Substance: EPIRUBICIN
     Indication: ADENOCARCINOMA GASTRIC
     Dosage: 104MG
     Route: 042
     Dates: start: 20130522
  13. BEVACIZUMAB [Suspect]
     Active Substance: BEVACIZUMAB
     Indication: ADENOCARCINOMA GASTRIC
     Dosage: 700MG
     Route: 042
     Dates: start: 20130522
  14. INSULIN ASPART [Suspect]
     Active Substance: INSULIN ASPART
     Indication: TYPE 2 DIABETES MELLITUS
     Dosage: UNK UNK, BID
     Route: 058
     Dates: start: 2012
  15. ISOSORBIDE MONONITRATE. [Concomitant]
     Active Substance: ISOSORBIDE MONONITRATE
     Dosage: UNK
     Route: 048
     Dates: start: 2001
  16. OMEPRAZOLE. [Suspect]
     Active Substance: OMEPRAZOLE
     Dosage: UNK
     Route: 048
     Dates: start: 201303
  17. TRAMADOL HYDROCHLORIDE/PARACETAMOL [Concomitant]
     Active Substance: ACETAMINOPHEN\TRAMADOL HYDROCHLORIDE
     Dosage: UNK
     Route: 048
     Dates: start: 201302
  18. GLIPIZIDE. [Suspect]
     Active Substance: GLIPIZIDE
     Indication: TYPE 2 DIABETES MELLITUS
     Dosage: 10 MG, BID
     Route: 048
     Dates: start: 2009, end: 20130527
  19. CAPECITABINE. [Suspect]
     Active Substance: CAPECITABINE
     Indication: GASTROOESOPHAGEAL CANCER
  20. BISOPROLOL [Concomitant]
     Active Substance: BISOPROLOL
     Dosage: UNK
     Route: 048
     Dates: start: 201304

REACTIONS (1)
  - Hypoglycaemia [Recovered/Resolved]

NARRATIVE: CASE EVENT DATE: 20130526
